FAERS Safety Report 6811231-5 (Version None)
Quarter: 2010Q2

REPORT INFORMATION
  Report Type: 
  Country: None (occurrence: None)
  Receive Date: 20100629
  Receipt Date: 20100629
  Transmission Date: 20101027
  Serious: Yes (Death)
  Sender: FDA-Public Use
  Company Number: None

PATIENT
  Sex: Female
  Weight: 74.5 kg

DRUGS (2)
  1. CAPECITABINE [Suspect]
     Indication: PANCREATIC CARCINOMA
     Dosage: CAPECITABINE 1000 MG BID ON XRT DAYS ORAL
     Route: 048
     Dates: start: 20100416, end: 20100510
  2. VORINOSTAT [Suspect]
     Indication: PANCREATIC CARCINOMA
     Dosage: VORINOSTAT 100 MG DAILY ON XRT DAYS ORAL
     Route: 048
     Dates: start: 20100426, end: 20100524

REACTIONS (7)
  - CARDIAC ARREST [None]
  - GENERAL PHYSICAL HEALTH DETERIORATION [None]
  - HEPATIC ARTERY FLOW DECREASED [None]
  - HEPATIC FAILURE [None]
  - HEPATIC ISCHAEMIA [None]
  - HEPATIC NECROSIS [None]
  - PORTAL VEIN FLOW DECREASED [None]
